FAERS Safety Report 15282968 (Version 2)
Quarter: 2018Q4

REPORT INFORMATION
  Report Type: Spontaneous
  Country: DE (occurrence: DE)
  Receive Date: 20180816
  Receipt Date: 20181010
  Transmission Date: 20190204
  Serious: Yes (Hospitalization)
  Sender: FDA-Public Use
  Company Number: DE-TEVA-2018-DE-907693

PATIENT
  Age: 76 Year
  Sex: Male

DRUGS (27)
  1. METOPROLOL. [Suspect]
     Active Substance: METOPROLOL
     Dosage: 1-0-1-0
     Route: 065
  2. AVAMYS [Concomitant]
     Active Substance: FLUTICASONE FUROATE
     Dosage: NK MG, NEED.
     Route: 065
  3. ACC [Concomitant]
     Active Substance: ACETYLCYSTEINE
     Dosage: NEED
     Route: 065
  4. SYMBICORT [Concomitant]
     Active Substance: BUDESONIDE\FORMOTEROL FUMARATE DIHYDRATE
     Dosage: 160|4.5 MG, 1-0-1-0
     Route: 065
  5. TILIDINE [Concomitant]
     Active Substance: TILIDINE
     Dosage: 50|4 MG, 1-0-1-0
     Route: 065
  6. XIPAMIDE [Concomitant]
     Active Substance: XIPAMIDE
     Dosage: 1-0-0-0
     Route: 065
  7. ACETYLSALICYLSAEURE [Concomitant]
     Active Substance: ASPIRIN
     Dosage: 1-0-0-0
     Route: 065
  8. ACETYLSALICYLSAEURE [Concomitant]
     Active Substance: ASPIRIN
     Route: 065
  9. NITROSPRAY [Concomitant]
     Active Substance: NITROGLYCERIN
     Dosage: NEED
     Route: 065
  10. ATROVENT [Concomitant]
     Active Substance: IPRATROPIUM BROMIDE
     Dosage: NEED
     Route: 065
  11. COLECALCIFEROL [Concomitant]
     Active Substance: CHOLECALCIFEROL
     Dosage: 1-0-0-0
     Route: 065
  12. TAMSULOSIN [Concomitant]
     Active Substance: TAMSULOSIN
     Dosage: 0-0-1-0
     Route: 065
  13. CLOPIDOGREL [Concomitant]
     Active Substance: CLOPIDOGREL BISULFATE
     Dosage: 1-0-0-0
     Route: 065
  14. FUROSEMIDE. [Concomitant]
     Active Substance: FUROSEMIDE
     Dosage: 1-1-0-0
     Route: 065
  15. METAMIZOL [Concomitant]
     Active Substance: METAMIZOLE SODIUM
     Dosage: NEED
     Route: 065
  16. SIMVASTATIN. [Concomitant]
     Active Substance: SIMVASTATIN
     Dosage: 0-0-1-0
     Route: 065
  17. BROMAZEPAM [Concomitant]
     Active Substance: BROMAZEPAM
     Dosage: NEED
     Route: 065
  18. INSULIN HUMAN [Concomitant]
     Active Substance: INSULIN HUMAN
     Dosage: 14-0-24-0
     Route: 065
  19. SPIRIVA [Concomitant]
     Active Substance: TIOTROPIUM BROMIDE MONOHYDRATE
     Dosage: 1-0-0-0
     Route: 065
  20. BERODUAL [Concomitant]
     Active Substance: FENOTEROL HYDROBROMIDE\IPRATROPIUM BROMIDE
     Dosage: 1-1-0-0
     Route: 065
  21. MAGNESIUM [Concomitant]
     Active Substance: MAGNESIUM
     Dosage: 0-0-0-1
     Route: 065
  22. MOLSIHEXAL [Concomitant]
     Active Substance: MOLSIDOMINE
     Dosage: 0-0-0-1
     Route: 065
  23. ADENURIC [Concomitant]
     Active Substance: FEBUXOSTAT
     Dosage: 0-0-1-0 /2. TAG
     Route: 065
  24. EZETROL [Concomitant]
     Active Substance: EZETIMIBE
     Dosage: 0-0-0-1
     Route: 065
  25. SALBUTAMOL [Concomitant]
     Active Substance: ALBUTEROL
     Dosage: NEED
     Route: 065
  26. ISOKET [Concomitant]
     Active Substance: ISOSORBIDE DINITRATE
     Dosage: 1-1-0-0
     Route: 065
  27. KALINOR (POTASSIUM CHLORIDE) [Concomitant]
     Active Substance: POTASSIUM CHLORIDE
     Dosage: 1-1-0-0
     Route: 065

REACTIONS (3)
  - Cough [Unknown]
  - Dyspnoea [Unknown]
  - Product prescribing error [Unknown]

NARRATIVE: CASE EVENT DATE: 20161206
